FAERS Safety Report 4595077-7 (Version None)
Quarter: 2005Q1

REPORT INFORMATION
  Report Type: 
  Country: None (occurrence: None)
  Receive Date: 20050223
  Receipt Date: 20050207
  Transmission Date: 20050727
  Serious: Yes (Death)
  Sender: FDA-Public Use
  Company Number: 2005-CN-00448CN

PATIENT
  Sex: Male

DRUGS (1)
  1. ATROVENT [Suspect]
     Dosage: IH
     Route: 055

REACTIONS (1)
  - NEOPLASM MALIGNANT [None]
